FAERS Safety Report 9224382 (Version 1)
Quarter: 2013Q2

REPORT INFORMATION
  Report Type: Spontaneous
  Country: US (occurrence: US)
  Receive Date: 20130411
  Receipt Date: 20130411
  Transmission Date: 20140414
  Serious: Yes (Other)
  Sender: FDA-Public Use
  Company Number: US-JNJCP-30000155708

PATIENT
  Sex: Female
  Weight: 60 kg

DRUGS (4)
  1. NEUTROGENA MOISTURE SPF 15 UNTINTED [Suspect]
     Indication: DRY SKIN PROPHYLAXIS
     Dosage: LIBERALLY, ONCE DAILY
     Route: 061
  2. ASPIRIN [Concomitant]
     Dosage: ONCE A DAY SINCE FIFTEEN YEARS
  3. THYROID MEDICATION [Concomitant]
     Indication: THYROID DISORDER
     Dosage: ONE PER DAY, ALL HER LIFE
  4. VITAMIN D [Concomitant]
     Indication: ROUTINE HEALTH MAINTENANCE
     Dosage: ONCE A DAY SINCE THREE YEARS

REACTIONS (3)
  - Basal cell carcinoma [Unknown]
  - Application site erythema [Unknown]
  - Basal cell carcinoma [None]
